FAERS Safety Report 14614905 (Version 1)
Quarter: 2018Q1

REPORT INFORMATION
  Report Type: Spontaneous
  Country: US (occurrence: US)
  Receive Date: 20180308
  Receipt Date: 20180308
  Transmission Date: 20180509
  Serious: Yes (Other)
  Sender: FDA-Public Use
  Company Number: US-PFIZER INC-2018091646

PATIENT
  Age: 65 Year
  Sex: Female
  Weight: 70.76 kg

DRUGS (2)
  1. LYRICA [Suspect]
     Active Substance: PREGABALIN
     Dosage: EACH CAPSULE CONTAINS 300 MG/TAKE ONE CAPSULE BY MOUTH THREE TIMES A DAY
     Route: 048
  2. LYRICA [Suspect]
     Active Substance: PREGABALIN
     Indication: FIBROMYALGIA
     Dosage: 45 MG
     Route: 048
     Dates: start: 2000

REACTIONS (2)
  - Drug dependence [Unknown]
  - Prescribed overdose [Unknown]
